FAERS Safety Report 7728851-6 (Version None)
Quarter: 2011Q3

REPORT INFORMATION
  Report Type: 
  Country: None (occurrence: None)
  Receive Date: 20110817
  Receipt Date: 20110425
  Transmission Date: 20111222
  Serious: Yes (Other)
  Sender: FDA-Public Use
  Company Number: 201110487

PATIENT
  Age: 61 Year
  Sex: Male

DRUGS (4)
  1. DILAUDID [Concomitant]
  2. BUPIVICAINE [Concomitant]
  3. LIORESAL [Suspect]
     Indication: MUSCLE SPASTICITY
     Dosage: 99.89-150.14, DAILY, INTRATHECAL
     Route: 037
  4. CLONIDINE [Concomitant]

REACTIONS (2)
  - HYPOAESTHESIA [None]
  - DYSPNOEA [None]
